FAERS Safety Report 12043690 (Version 1)
Quarter: 2016Q1

REPORT INFORMATION
  Report Type: Report from Study
  Country: US (occurrence: US)
  Receive Date: 20160208
  Receipt Date: 20160208
  Transmission Date: 20160526
  Serious: Yes (Other)
  Sender: FDA-Public Use
  Company Number: US-AMGEN-USASL2016013810

PATIENT
  Age: 58 Year
  Sex: Female

DRUGS (2)
  1. ENBREL [Suspect]
     Active Substance: ETANERCEPT
     Dosage: 50 MG, 2 TIMES/WK
     Route: 065
  2. ENBREL [Suspect]
     Active Substance: ETANERCEPT
     Indication: PSORIASIS
     Dosage: 50 MG, QWK
     Route: 065

REACTIONS (6)
  - Psoriasis [Unknown]
  - Carpal tunnel syndrome [Unknown]
  - Memory impairment [Unknown]
  - Intentional product misuse [Unknown]
  - Breast cancer [Unknown]
  - Injection site pain [Unknown]

NARRATIVE: CASE EVENT DATE: 2011
